FAERS Safety Report 6093825-0 (Version None)
Quarter: 2009Q1

REPORT INFORMATION
  Report Type: 
  Country: None (occurrence: None)
  Receive Date: 20090226
  Receipt Date: 20080826
  Transmission Date: 20090719
  Serious: Yes (Hospitalization)
  Sender: FDA-Public Use
  Company Number: US-PFIZER INC-2008070947

PATIENT
  Sex: Male
  Weight: 58 kg

DRUGS (4)
  1. SUNITINIB MALATE [Suspect]
     Indication: GASTROINTESTINAL STROMAL TUMOUR
     Route: 048
     Dates: start: 20060124, end: 20060905
  2. SUNITINIB MALATE [Suspect]
     Dosage: 25 MG, 1X/DAY
     Route: 048
     Dates: start: 20060920, end: 20080801
  3. MARINOL [Concomitant]
     Route: 048
     Dates: start: 20070904
  4. SYNTHROID [Concomitant]
     Route: 048
     Dates: start: 20080321

REACTIONS (1)
  - CARDIAC FAILURE CONGESTIVE [None]
